FAERS Safety Report 11106597 (Version 3)
Quarter: 2015Q3

REPORT INFORMATION
  Report Type: Report from Study
  Country: US (occurrence: US)
  Receive Date: 20150512
  Receipt Date: 20150707
  Transmission Date: 20151125
  Serious: Yes (Death)
  Sender: FDA-Public Use
  Company Number: US-SA-2015SA061997

PATIENT
  Age: 46 Year
  Sex: Male
  Weight: 166.5 kg

DRUGS (1)
  1. RENVELA [Suspect]
     Active Substance: SEVELAMER CARBONATE
     Indication: CHRONIC KIDNEY DISEASE
     Dosage: 800MG ? TABLETS
     Route: 048
     Dates: start: 20100513, end: 20141021

REACTIONS (1)
  - Pneumonia [Fatal]
